FAERS Safety Report 8437376-4 (Version None)
Quarter: 2012Q2

REPORT INFORMATION
  Report Type: 
  Country: None (occurrence: None)
  Receive Date: 20120614
  Receipt Date: 20120314
  Transmission Date: 20120825
  Serious: No
  Sender: FDA-Public Use
  Company Number: US-AMGEN-USASP2012015071

PATIENT
  Age: 80 Year
  Sex: Female
  Weight: 56.236 kg

DRUGS (7)
  1. PROLIA [Suspect]
     Indication: OSTEOPOROSIS POSTMENOPAUSAL
     Dosage: 60 MG, Q6MO
     Route: 058
     Dates: start: 20110811
  2. ZOLPIDEM [Concomitant]
     Indication: SLEEP DISORDER
     Dosage: 5 MG, UNK
  3. FEMARA [Concomitant]
     Indication: BREAST CANCER
     Dosage: UNK
  4. VITAMIN D [Concomitant]
     Dosage: 800 IU, QD
  5. METHIMAZOLE [Concomitant]
     Indication: THYROID DISORDER
  6. CALCIUM [Concomitant]
     Dosage: 1200 IU, QD
  7. LETROZOLE [Concomitant]
     Indication: BREAST CANCER
     Dosage: 2.5 MG, QD
     Route: 048
     Dates: start: 20080210

REACTIONS (3)
  - PARAESTHESIA [None]
  - PAIN IN EXTREMITY [None]
  - INFLUENZA LIKE ILLNESS [None]
